FAERS Safety Report 22356246 (Version 2)
Quarter: 2023Q2

REPORT INFORMATION
  Report Type: Report from Study
  Country: US (occurrence: US)
  Receive Date: 20230523
  Receipt Date: 20230613
  Transmission Date: 20230721
  Serious: Yes (Hospitalization)
  Sender: FDA-Public Use
  Company Number: US-JNJFOC-20230540520

PATIENT
  Age: 74 Year
  Sex: Male
  Weight: 106.1 kg

DRUGS (3)
  1. ABIRATERONE ACETATE [Suspect]
     Active Substance: ABIRATERONE ACETATE
     Indication: Prostate cancer
     Route: 048
     Dates: start: 20220909, end: 20230228
  2. NIRAPARIB [Suspect]
     Active Substance: NIRAPARIB
     Indication: Prostate cancer
     Route: 048
     Dates: start: 20220909, end: 20230228
  3. PREDNISONE [Suspect]
     Active Substance: PREDNISONE
     Indication: Prostate cancer
     Route: 048
     Dates: start: 20220909, end: 20230228

REACTIONS (2)
  - Musculoskeletal disorder [Recovering/Resolving]
  - Connective tissue disorder [Recovering/Resolving]

NARRATIVE: CASE EVENT DATE: 20230508
